FAERS Safety Report 23489102 (Version 1)
Quarter: 2024Q1

REPORT INFORMATION
  Report Type: Spontaneous
  Country: US (occurrence: US)
  Receive Date: 20240206
  Receipt Date: 20240206
  Transmission Date: 20240409
  Serious: No
  Sender: FDA-Public Use
  Company Number: US-FreseniusKabi-FK202402000

PATIENT

DRUGS (3)
  1. ADENOSINE [Suspect]
     Active Substance: ADENOSINE
     Indication: Product used for unknown indication
     Dosage: FORM OF ADMIN: INJECTION
  2. ADENOSINE [Suspect]
     Active Substance: ADENOSINE
     Dosage: FORM OF ADMIN: INJECTION
  3. ADENOSINE [Suspect]
     Active Substance: ADENOSINE
     Dosage: FORM OF ADMIN: INJECTION

REACTIONS (1)
  - Drug ineffective [Unknown]
